FAERS Safety Report 19651146 (Version 2)
Quarter: 2021Q3

REPORT INFORMATION
  Report Type: Report from Study
  Country: ES (occurrence: ES)
  Receive Date: 20210802
  Receipt Date: 20210820
  Transmission Date: 20211014
  Serious: Yes (Other)
  Sender: FDA-Public Use
  Company Number: ES-BAUSCH-BL-2021-025661

PATIENT
  Age: 9 Decade
  Sex: Male

DRUGS (5)
  1. MELPHALAN. [Suspect]
     Active Substance: MELPHALAN
     Indication: PLASMA CELL MYELOMA
     Route: 065
  2. DARZALEX [Suspect]
     Active Substance: DARATUMUMAB
     Dosage: 24 MG/KG IN WEEK 34, 37, 40, 43, 46, 49 AND 52 OF DVMP TREATMENT IN 1ST,  WEEK 55 ? 1 (24 MG/KG)
     Route: 042
  3. VELCADE [Suspect]
     Active Substance: BORTEZOMIB
     Indication: PLASMA CELL MYELOMA
     Route: 065
  4. PREDNISOLONE. [Suspect]
     Active Substance: PREDNISOLONE
     Indication: PLASMA CELL MYELOMA
     Route: 065
  5. DARZALEX [Suspect]
     Active Substance: DARATUMUMAB
     Indication: PLASMA CELL MYELOMA
     Dosage: WEEK 1 ? 1 (16 MG/KG) TO WEEK 31 ? 1 (16 MG/KG)
     Route: 042

REACTIONS (4)
  - Off label use [Unknown]
  - Renal failure [Not Recovered/Not Resolved]
  - Product use issue [Unknown]
  - Diabetes mellitus [Unknown]
